FAERS Safety Report 9309031 (Version 1)
Quarter: 2013Q2

REPORT INFORMATION
  Report Type: Spontaneous
  Country: US (occurrence: US)
  Receive Date: 20130524
  Receipt Date: 20130524
  Transmission Date: 20140414
  Serious: No
  Sender: FDA-Public Use
  Company Number: US-009507513-1305USA010008

PATIENT
  Age: 65 Year
  Sex: Female

DRUGS (1)
  1. ZOLINZA [Suspect]
     Indication: T-CELL LYMPHOMA
     Dosage: UNK
     Route: 048

REACTIONS (1)
  - Fatigue [Unknown]
